FAERS Safety Report 4368762-X (Version None)
Quarter: 2004Q2

REPORT INFORMATION
  Report Type: 
  Country: None (occurrence: None)
  Receive Date: 20040528
  Receipt Date: 20040518
  Transmission Date: 20050107
  Serious: Yes (Other)
  Sender: FDA-Public Use
  Company Number: 2004033716

PATIENT
  Sex: Male

DRUGS (7)
  1. NEURONTIN [Suspect]
     Indication: ILL-DEFINED DISORDER
     Dosage: 900 MG (DAILY), ORAL
     Route: 048
     Dates: start: 20040101
  2. PROCHLORPERAZINE [Suspect]
     Indication: ILL-DEFINED DISORDER
     Dosage: 15 MG (DAILY), ORAL
     Route: 048
     Dates: start: 20040101
  3. WARFARIN SODIUM CLATHRATE (WARFARIN SODIUM CLARTHRATE) [Concomitant]
  4. LANSOPRAZOLE [Concomitant]
  5. DEXAMETHASONE [Concomitant]
  6. METFORMIN HCL [Concomitant]
  7. OXYCODONE HCL [Concomitant]

REACTIONS (1)
  - HEPATIC FUNCTION ABNORMAL [None]
